FAERS Safety Report 13068851 (Version 8)
Quarter: 2018Q1

REPORT INFORMATION
  Report Type: Spontaneous
  Country: JP (occurrence: JP)
  Receive Date: 20161228
  Receipt Date: 20180129
  Transmission Date: 20180508
  Serious: Yes (Death, Hospitalization, Other)
  Sender: FDA-Public Use
  Company Number: JP-BRISTOL-MYERS SQUIBB COMPANY-BMS-2016-110244

PATIENT
  Age: 54 Year
  Sex: Female

DRUGS (2)
  1. OPDIVO [Suspect]
     Active Substance: NIVOLUMAB
     Indication: PRODUCT USED FOR UNKNOWN INDICATION
     Dosage: 3 MG/KG, UNK
     Route: 041
     Dates: start: 20160902, end: 20160902
  2. OPDIVO [Suspect]
     Active Substance: NIVOLUMAB
     Indication: NON-SMALL CELL LUNG CANCER RECURRENT
     Dosage: 3 MG/KG, UNK
     Route: 041
     Dates: start: 20160812, end: 20160812

REACTIONS (7)
  - Cerebellar ataxia [Recovering/Resolving]
  - Urinary retention [Recovered/Resolved]
  - Malignant neoplasm progression [Fatal]
  - Pneumonia [Fatal]
  - Bladder catheterisation [Unknown]
  - Dizziness [Not Recovered/Not Resolved]
  - Neurogenic bladder [Recovering/Resolving]

NARRATIVE: CASE EVENT DATE: 20160819
